FAERS Safety Report 21812167 (Version 1)
Quarter: 2022Q4

REPORT INFORMATION
  Report Type: Spontaneous
  Country: US (occurrence: None)
  Receive Date: 20221230
  Receipt Date: 20221230
  Transmission Date: 20230113
  Serious: Yes (Life-Threatening, Disabling)
  Sender: FDA-Public Use
  Company Number: None

PATIENT
  Age: 53 Year
  Sex: Female
  Weight: 58.5 kg

DRUGS (11)
  1. OCREVUS [Suspect]
     Active Substance: OCRELIZUMAB
     Indication: Multiple sclerosis
     Dates: start: 20181120, end: 20221202
  2. OCREVUS [Concomitant]
  3. dalfamipridine [Concomitant]
  4. LEVOTHYROXINE [Concomitant]
  5. FLUOXETINE [Concomitant]
     Active Substance: FLUOXETINE HYDROCHLORIDE
  6. TRAZODONE [Concomitant]
     Active Substance: TRAZODONE HYDROCHLORIDE
  7. baclofen (as needed) [Concomitant]
  8. estradiol (discontinued on 12/22/2022) [Concomitant]
  9. vitamin d [Concomitant]
  10. FISH OIL [Concomitant]
  11. CALCIUM\MAGNESIUM [Concomitant]
     Active Substance: CALCIUM\MAGNESIUM

REACTIONS (1)
  - Breast cancer female [None]

NARRATIVE: CASE EVENT DATE: 20221222
